FAERS Safety Report 5167282-2 (Version None)
Quarter: 2006Q4

REPORT INFORMATION
  Report Type: 
  Country: None (occurrence: None)
  Receive Date: 20061124
  Receipt Date: 20061118
  Transmission Date: 20070319
  Serious: Yes (Hospitalization)
  Sender: FDA-Public Use
  Company Number: 2006-02999

PATIENT
  Age: 60 Year
  Sex: Female

DRUGS (30)
  1. VELCADE [Suspect]
     Indication: MULTIPLE MYELOMA
     Dates: start: 20060506
  2. VELCADE [Suspect]
     Indication: MULTIPLE MYELOMA
     Dates: start: 20060622
  3. MELPHALAN (MELPHALAN) VIAL [Suspect]
     Indication: MULTIPLE MYELOMA
     Dosage: 326.00 MG, UNK; INTRAVENOUS, 326.00 MG,
     Route: 042
     Dates: start: 20060803
  4. MELPHALAN (MELPHALAN) VIAL [Suspect]
     Indication: MULTIPLE MYELOMA
     Dosage: 326.00 MG, UNK; INTRAVENOUS, 326.00 MG,
     Route: 042
     Dates: start: 20061026
  5. THALIDOMIDE [Suspect]
     Indication: MULTIPLE MYELOMA
     Dosage: 100.00 MG, UNK; ORAL
     Route: 048
     Dates: start: 20060823, end: 20061003
  6. THALIDOMIDE [Suspect]
     Indication: MULTIPLE MYELOMA
     Dosage: 100.00 MG, UNK; ORAL
     Route: 048
     Dates: start: 20060506
  7. THALIDOMIDE [Suspect]
     Indication: MULTIPLE MYELOMA
     Dosage: 100.00 MG, UNK; ORAL
     Route: 048
     Dates: start: 20060622
  8. DEXAMETHASONE [Suspect]
     Indication: MULTIPLE MYELOMA
     Dosage: 20.00 MG, UNK, ORAL
     Route: 048
     Dates: start: 20060823, end: 20061005
  9. DEXAMETHASONE [Suspect]
     Indication: MULTIPLE MYELOMA
     Dosage: 20.00 MG, UNK, ORAL
     Route: 048
     Dates: start: 20060506
  10. DEXAMETHASONE [Suspect]
     Indication: MULTIPLE MYELOMA
     Dosage: 20.00 MG, UNK, ORAL
     Route: 048
     Dates: start: 20060622
  11. CISPLATIN [Suspect]
     Indication: MULTIPLE MYELOMA
     Dates: start: 20060506
  12. CISPLATIN [Suspect]
     Indication: MULTIPLE MYELOMA
     Dates: start: 20060622
  13. DOXORUBICIN HCL [Suspect]
     Indication: MULTIPLE MYELOMA
     Dates: start: 20060506
  14. DOXORUBICIN HCL [Suspect]
     Indication: MULTIPLE MYELOMA
     Dates: start: 20060622
  15. CYCLOPHOSPHAMIDE [Suspect]
     Indication: MULTIPLE MYELOMA
     Dates: start: 20060506, end: 20060622
  16. CYCLOPHOSPHAMIDE [Suspect]
     Indication: MULTIPLE MYELOMA
     Dates: start: 20060506
  17. ETOPOSIDE [Suspect]
     Indication: MULTIPLE MYELOMA
     Dates: start: 20060506
  18. ETOPOSIDE [Suspect]
     Indication: MULTIPLE MYELOMA
     Dates: start: 20060622
  19. KYTRIL [Concomitant]
  20. ACYCLOVIR [Concomitant]
  21. GABAPENTIN [Concomitant]
  22. CLONAZEPAM [Concomitant]
  23. OXYCODONE HCL [Concomitant]
  24. MAGNESIUM OXIDE [Concomitant]
  25. METOPROLOL SUCCINATE [Concomitant]
  26. CELEXA [Concomitant]
  27. TRAZODONE HCL [Concomitant]
  28. FOLIC ACID [Concomitant]
  29. MULTIVITAMINS (ERGOCALCIFEROL, PANTHENOL, NICOTINAMIDE, RIBOFLAVIN, TH [Concomitant]
  30. SIMETHICONE [Concomitant]

REACTIONS (19)
  - ABDOMINAL PAIN [None]
  - ANOREXIA [None]
  - COLITIS [None]
  - COUGH [None]
  - DIARRHOEA [None]
  - DIVERTICULUM [None]
  - DYSPHAGIA [None]
  - DYSPNOEA EXERTIONAL [None]
  - FATIGUE [None]
  - MUCOSAL INFLAMMATION [None]
  - NAUSEA [None]
  - OESOPHAGITIS [None]
  - PAIN [None]
  - PATHOGEN RESISTANCE [None]
  - PNEUMONIA [None]
  - PYREXIA [None]
  - STAPHYLOCOCCAL BACTERAEMIA [None]
  - TRANSPLANT [None]
  - VOMITING [None]
